FAERS Safety Report 16012322 (Version 2)
Quarter: 2019Q1

REPORT INFORMATION
  Report Type: Spontaneous
  Country: JP (occurrence: JP)
  Receive Date: 20190227
  Receipt Date: 20190331
  Transmission Date: 20190418
  Serious: Yes (Death, Other)
  Sender: FDA-Public Use
  Company Number: JP-AMGEN-JPNSP2019031009

PATIENT
  Age: 54 Year
  Sex: Female

DRUGS (1)
  1. VECTIBIX [Suspect]
     Active Substance: PANITUMUMAB
     Indication: COLON CANCER
     Dosage: 6 MILLIGRAM/KILOGRAM, Q2WK
     Route: 041
     Dates: start: 201809

REACTIONS (2)
  - Colon cancer [Fatal]
  - Disease progression [Fatal]

NARRATIVE: CASE EVENT DATE: 201810
